FAERS Safety Report 17025624 (Version 1)
Quarter: 2019Q4

REPORT INFORMATION
  Report Type: Spontaneous
  Country: US (occurrence: US)
  Receive Date: 20191009
  Receipt Date: 20191009
  Transmission Date: 20200122
  Serious: Yes (Hospitalization)
  Sender: FDA-Public Use
  Company Number: None

PATIENT
  Age: 56 Year
  Sex: Female

DRUGS (1)
  1. AMBRISENTAN TABLETS 30/BO: 10MG [Suspect]
     Active Substance: AMBRISENTAN
     Indication: PULMONARY ARTERIAL HYPERTENSION
     Route: 048
     Dates: start: 201805

REACTIONS (6)
  - Dyspnoea [None]
  - Hypoxia [None]
  - Polyuria [None]
  - Abdominal discomfort [None]
  - Pericardial effusion [None]
  - Hypotension [None]

NARRATIVE: CASE EVENT DATE: 20190914
